FAERS Safety Report 8280060-0 (Version None)
Quarter: 2012Q2

REPORT INFORMATION
  Report Type: 
  Country: None (occurrence: None)
  Receive Date: 20120412
  Receipt Date: 20120214
  Transmission Date: 20120825
  Serious: No
  Sender: FDA-Public Use
  Company Number: US-ASTRAZENECA-2011SE77082

PATIENT
  Age: 70 Year
  Sex: Female

DRUGS (2)
  1. GENERIC BRANDS [Suspect]
     Route: 065
  2. NEXIUM [Suspect]
     Route: 048

REACTIONS (6)
  - THROAT IRRITATION [None]
  - DRUG INEFFECTIVE [None]
  - GASTROOESOPHAGEAL REFLUX DISEASE [None]
  - MALAISE [None]
  - DRUG DOSE OMISSION [None]
  - BARRETT'S OESOPHAGUS [None]
